FAERS Safety Report 4630006-9 (Version None)
Quarter: 2005Q2

REPORT INFORMATION
  Report Type: 
  Country: None (occurrence: None)
  Receive Date: 20050408
  Receipt Date: 20050329
  Transmission Date: 20051028
  Serious: Yes (Hospitalization)
  Sender: FDA-Public Use
  Company Number: US-KINGPHARMUSA00001-K200500445

PATIENT
  Age: 23 Year
  Sex: Female

DRUGS (2)
  1. PROLOPRIM [Suspect]
     Indication: URINARY TRACT INFECTION
     Route: 048
     Dates: start: 20040125, end: 20040131
  2. SEPTRA [Suspect]
     Route: 048
     Dates: start: 20040125, end: 20040131

REACTIONS (2)
  - PRURITUS [None]
  - URTICARIA [None]
